FAERS Safety Report 5841762-6 (Version None)
Quarter: 2008Q3

REPORT INFORMATION
  Report Type: 
  Country: None (occurrence: None)
  Receive Date: 20080812
  Receipt Date: 20080807
  Transmission Date: 20090109
  Serious: Yes (Hospitalization)
  Sender: FDA-Public Use
  Company Number: ES-WYE-G01981308

PATIENT
  Age: 40 Year
  Sex: Female

DRUGS (3)
  1. TAZOCEL [Suspect]
     Indication: PNEUMONIA
     Route: 042
     Dates: start: 20080609, end: 20080613
  2. COTRIM [Suspect]
     Indication: PNEUMONIA
     Route: 042
     Dates: start: 20080609, end: 20080611
  3. VANCOMYCIN HCL [Suspect]
     Indication: PNEUMONIA
     Route: 042
     Dates: start: 20080609, end: 20080613

REACTIONS (3)
  - ANAEMIA [None]
  - COAGULOPATHY [None]
  - THROMBOCYTOPENIA [None]
